FAERS Safety Report 9149630 (Version 1)
Quarter: 2013Q1

REPORT INFORMATION
  Report Type: Spontaneous
  Country: ES (occurrence: ES)
  Receive Date: 20130308
  Receipt Date: 20130308
  Transmission Date: 20140127
  Serious: Yes (Other)
  Sender: FDA-Public Use
  Company Number: ES-ASTELLAS-2013EU001947

PATIENT
  Age: 56 Year
  Sex: Male

DRUGS (6)
  1. TACROLIMUS SYSTEMIC [Suspect]
     Indication: KERATOPLASTY
     Dosage: 1 MG, BID
     Route: 048
  2. CHLORHEXIDINE [Concomitant]
     Indication: KERATOPLASTY
     Dosage: UNK
     Route: 061
  3. MOXIFLOXACIN [Concomitant]
     Indication: KERATOPLASTY
     Dosage: UNK
     Route: 061
  4. CYCLOPENTOLATE HYDROCHLORIDE [Concomitant]
     Indication: KERATOPLASTY
     Dosage: UNK
     Route: 061
  5. DEXAMETHASON                       /00016002/ [Concomitant]
     Indication: KERATOPLASTY
     Dosage: UNK
     Route: 061
  6. PREDNISOLONE [Concomitant]
     Indication: KERATOPLASTY
     Dosage: 60 MG, UID/QD
     Route: 048

REACTIONS (3)
  - Off label use [Unknown]
  - Eye infection intraocular [Recovering/Resolving]
  - Acanthamoeba infection [Recovering/Resolving]
